FAERS Safety Report 15854086 (Version 1)
Quarter: 2019Q1

REPORT INFORMATION
  Report Type: Spontaneous
  Country: CA (occurrence: CA)
  Receive Date: 20190122
  Receipt Date: 20190122
  Transmission Date: 20190417
  Serious: Yes (Other)
  Sender: FDA-Public Use
  Company Number: CA-JNJFOC-20190120518

PATIENT
  Age: 63 Year
  Sex: Male

DRUGS (3)
  1. PREZCOBIX [Suspect]
     Active Substance: COBICISTAT\DARUNAVIR ETHANOLATE
     Indication: HIV INFECTION
     Route: 048
  2. EMTRICITABINE [Concomitant]
     Active Substance: EMTRICITABINE
     Route: 065
  3. TENOFOVIR [Concomitant]
     Active Substance: TENOFOVIR
     Route: 065

REACTIONS (1)
  - Cortisol decreased [Recovered/Resolved]
